FAERS Safety Report 9821211 (Version 1)
Quarter: 2013Q4

REPORT INFORMATION
  Report Type: Spontaneous
  Country: US (occurrence: None)
  Receive Date: 20131028
  Receipt Date: 20131028
  Transmission Date: 20140711
  Serious: No
  Sender: FDA-Public Use
  Company Number: 2013US001160

PATIENT
  Age: 58 Year
  Sex: Male

DRUGS (9)
  1. ICLUSIG [Suspect]
     Indication: CHRONIC MYELOID LEUKAEMIA
     Route: 048
     Dates: start: 20130118
  2. AMLODIPINE (AMLODIPINE) [Concomitant]
  3. ACETAMINOPHEN W/HYDROCODONE (ACETAMINOPHEN W/HYDROCODONE)? [Concomitant]
  4. ALLOPURINOL (ALLOPURINOL) [Concomitant]
  5. TRAMADOL HYDROCHLORIDE (TRAMADOL HYDROCHLORIDE)? [Concomitant]
  6. CIPROFLOXACIN (CIPROFLOXACIN) [Concomitant]
  7. FLUCONAZOLE (FLUCONAZOLE) [Concomitant]
  8. OMEPRAZOLE MAGNESIUM (OMEPRAZOLE MAGNESIUM) [Concomitant]
  9. CITALOPRAM (CITALOPRAM) [Concomitant]

REACTIONS (1)
  - White blood cell count decreased [None]
